FAERS Safety Report 21331484 (Version 2)
Quarter: 2022Q3

REPORT INFORMATION
  Report Type: Spontaneous
  Country: JP (occurrence: JP)
  Receive Date: 20220914
  Receipt Date: 20220923
  Transmission Date: 20221026
  Serious: Yes (Hospitalization, Other)
  Sender: FDA-Public Use
  Company Number: JP-SUNPHARMA-2022R1-353144AA

PATIENT
  Age: 53 Year
  Sex: Male

DRUGS (15)
  1. LIORESAL [Suspect]
     Active Substance: BACLOFEN
     Indication: Pain
     Dosage: 1 TABLET TWICE PER DAY
     Route: 048
     Dates: start: 20220826
  2. TRAZENTA 5mg [Concomitant]
     Indication: Product used for unknown indication
     Dosage: 1 TABLET ONCE PER DAY
     Route: 048
  3. ATORVASTATIN [Concomitant]
     Active Substance: ATORVASTATIN
     Indication: Product used for unknown indication
     Dosage: 1 TABLET ONCE PER DAY
     Route: 048
  4. FUROSEMIDE [Concomitant]
     Active Substance: FUROSEMIDE
     Indication: Product used for unknown indication
     Dosage: 3 TABLETS ONCE PER DAY
     Route: 048
  5. CALONAL 200mg [Concomitant]
     Indication: Product used for unknown indication
     Dosage: 6 TABLETS IN 3 DIVIDED DOSES
     Route: 048
  6. LOXOPROFEN [Concomitant]
     Active Substance: LOXOPROFEN
     Indication: Product used for unknown indication
     Dosage: 3 TABLETS IN 3 DIVIDED DOSES
     Route: 048
  7. AMITIZA CAPSULES 24microgram [Concomitant]
     Indication: Product used for unknown indication
     Dosage: 1 CAPSULE ONCE
     Route: 048
  8. CANDESARTAN [Concomitant]
     Active Substance: CANDESARTAN
     Indication: Product used for unknown indication
     Dosage: 2 TABLETS ONCE
     Route: 048
  9. PREGABALIN [Concomitant]
     Active Substance: PREGABALIN
     Indication: Product used for unknown indication
     Dosage: 2 TABLETS ONCE
     Route: 048
  10. NEXIUM [Concomitant]
     Active Substance: ESOMEPRAZOLE MAGNESIUM
     Indication: Product used for unknown indication
     Dosage: 1 CAPSULE ONCE
     Route: 048
  11. FOLIAMIN 5mg [Concomitant]
     Indication: Product used for unknown indication
     Dosage: 4 TABLETS IN 2 DIVIDED DOSES
     Route: 048
  12. AMLODIPINE BESYLATE [Concomitant]
     Active Substance: AMLODIPINE BESYLATE
     Indication: Product used for unknown indication
     Dosage: 3 TABLETS ONCE
     Route: 048
  13. EVRENZO 170mg [Concomitant]
     Indication: Product used for unknown indication
     Dosage: 3 TIMES PER WEEK
     Route: 065
  14. MIYA-BM [Concomitant]
     Active Substance: CLOSTRIDIUM BUTYRICUM SPORES STRAIN M-55
     Indication: Product used for unknown indication
     Dosage: 6 TABLETS IN 3 DIVIDES DOSES
     Route: 048
  15. CASANTHRANOL\DOCUSATE SODIUM [Concomitant]
     Active Substance: CASANTHRANOL\DOCUSATE SODIUM
     Indication: Product used for unknown indication
     Dosage: 6 TABLETS IN 2 DIVIDES DOSES
     Route: 048

REACTIONS (5)
  - Overdose [Unknown]
  - Hallucination [Unknown]
  - Coma [Unknown]
  - Pyrexia [Recovered/Resolved]
  - Delusion [Unknown]

NARRATIVE: CASE EVENT DATE: 20220826
